FAERS Safety Report 5804494-6 (Version None)
Quarter: 2008Q3

REPORT INFORMATION
  Report Type: 
  Country: None (occurrence: None)
  Receive Date: 20080709
  Receipt Date: 20080707
  Transmission Date: 20090109
  Serious: Yes (Hospitalization)
  Sender: FDA-Public Use
  Company Number: B0528054A

PATIENT
  Age: 57 Year
  Sex: Male

DRUGS (6)
  1. AMOXICILLIN TRIHYDRATE [Suspect]
     Route: 065
     Dates: start: 20071101, end: 20071101
  2. CLARITHROMYCIN [Concomitant]
     Dates: start: 20071101, end: 20071101
  3. PARIET [Concomitant]
     Dates: start: 20071101, end: 20071101
  4. AVISHOT [Concomitant]
  5. LOCHOL [Concomitant]
  6. RISUMIC [Concomitant]

REACTIONS (2)
  - ABDOMINAL PAIN [None]
  - CONSTIPATION [None]
